FAERS Safety Report 8532601-3 (Version None)
Quarter: 2012Q3

REPORT INFORMATION
  Report Type: 
  Country: None (occurrence: None)
  Receive Date: 20120724
  Receipt Date: 20120720
  Transmission Date: 20120928
  Serious: No
  Sender: FDA-Public Use
  Company Number: US-PFIZER INC-2012125246

PATIENT
  Sex: Female

DRUGS (3)
  1. ADVIL [Suspect]
     Dosage: 200 MG, UNK
     Route: 048
     Dates: start: 20120501
  2. ADVIL [Suspect]
     Indication: HEADACHE
  3. ADVIL [Suspect]
     Indication: TOOTHACHE
     Dosage: UNK
     Route: 048
     Dates: end: 20120501

REACTIONS (3)
  - PRODUCT LOT NUMBER ISSUE [None]
  - PRODUCT EXPIRATION DATE ISSUE [None]
  - DRUG INEFFECTIVE [None]
